FAERS Safety Report 17052608 (Version 1)
Quarter: 2019Q4

REPORT INFORMATION
  Report Type: Spontaneous
  Country: US (occurrence: US)
  Receive Date: 20191119
  Receipt Date: 20191119
  Transmission Date: 20200122
  Serious: No
  Sender: FDA-Public Use
  Company Number: None

PATIENT
  Age: 59 Year
  Sex: Female
  Weight: 47.25 kg

DRUGS (1)
  1. METOPROLOL TARTRATE 25 MG TAB; WHITE ROUND-SHAPED TABLET IMPRINTED WIT [Suspect]
     Active Substance: METOPROLOL TARTRATE
     Indication: VENTRICULAR EXTRASYSTOLES
     Dosage: ?          QUANTITY:.5 TABLET(S);?
     Route: 048
     Dates: start: 20191107

REACTIONS (4)
  - Myalgia [None]
  - Bone pain [None]
  - Product label confusion [None]
  - Wrong dose [None]

NARRATIVE: CASE EVENT DATE: 20191109
